FAERS Safety Report 23736700 (Version 6)
Quarter: 2024Q4

REPORT INFORMATION
  Report Type: Spontaneous
  Country: CZ (occurrence: CZ)
  Receive Date: 20240412
  Receipt Date: 20241206
  Transmission Date: 20250115
  Serious: Yes (Other)
  Sender: BLUEPRINT MEDICINES
  Company Number: CZ-Blueprint Medicines Corporation-SP-CZ-2024-000747

PATIENT
  Age: 68 Year
  Sex: Female
  Weight: 66 kg

DRUGS (13)
  1. AVAPRITINIB [Suspect]
     Active Substance: AVAPRITINIB
     Indication: Systemic mastocytosis
     Route: 065
     Dates: start: 20240617, end: 20240708
  2. AVAPRITINIB [Suspect]
     Active Substance: AVAPRITINIB
     Indication: Advanced systemic mastocytosis
     Route: 065
     Dates: start: 20240826
  3. AVAPRITINIB [Suspect]
     Active Substance: AVAPRITINIB
  4. AVAPRITINIB [Suspect]
     Active Substance: AVAPRITINIB
  5. AVAPRITINIB [Suspect]
     Active Substance: AVAPRITINIB
  6. AVAPRITINIB [Suspect]
     Active Substance: AVAPRITINIB
  7. FAMOTIDINE [Concomitant]
     Active Substance: FAMOTIDINE
     Indication: Mastocytosis
     Route: 065
  8. CEZERA [Concomitant]
     Indication: Mastocytosis
     Route: 065
  9. VALACYCLOVIR HYDROCHLORIDE [Concomitant]
     Active Substance: VALACYCLOVIR HYDROCHLORIDE
     Indication: Mastocytosis
     Route: 065
  10. GRANISETRON HYDROCHLORIDE [Concomitant]
     Active Substance: GRANISETRON HYDROCHLORIDE
     Indication: Product used for unknown indication
     Route: 065
  11. TORECAN [Concomitant]
     Active Substance: THIETHYLPERAZINE MALATE
     Indication: Product used for unknown indication
     Route: 065
  12. ZYRTEC [Concomitant]
     Active Substance: CETIRIZINE HYDROCHLORIDE
     Indication: Product used for unknown indication
     Route: 065
  13. POTASSIUM CHLORIDE [Concomitant]
     Active Substance: POTASSIUM CHLORIDE
     Indication: Product used for unknown indication
     Route: 065

REACTIONS (1)
  - Eosinophilia [Not Recovered/Not Resolved]

NARRATIVE: CASE EVENT DATE: 20240708
